FAERS Safety Report 9225557 (Version 6)
Quarter: 2014Q1

REPORT INFORMATION
  Report Type: Report from Study
  Country: CA (occurrence: CA)
  Receive Date: 20130411
  Receipt Date: 20140307
  Transmission Date: 20141002
  Serious: Yes (Other)
  Sender: FDA-Public Use
  Company Number: CA-ROCHE-1212682

PATIENT
  Age: 68 Year
  Sex: Female

DRUGS (4)
  1. AVASTIN [Suspect]
     Indication: OVARIAN CANCER
     Route: 042
     Dates: start: 20120104, end: 20131002
  2. ELTROXIN [Concomitant]
     Dosage: TAKEN FOR } 32 YEARS
     Route: 065
  3. ADVIL [Concomitant]
     Route: 065
     Dates: start: 20140219
  4. TYLENOL #3 (CANADA) [Concomitant]

REACTIONS (12)
  - Protein urine present [Unknown]
  - Neoplasm [Unknown]
  - Disease progression [Unknown]
  - Fatigue [Unknown]
  - Tumour marker increased [Unknown]
  - Alanine aminotransferase abnormal [Unknown]
  - Gamma-glutamyltransferase increased [Unknown]
  - Hyperlipidaemia [Unknown]
  - Nausea [Not Recovered/Not Resolved]
  - Pain [Not Recovered/Not Resolved]
  - Hypokinesia [Unknown]
  - Off label use [Unknown]
